FAERS Safety Report 17370693 (Version 1)
Quarter: 2020Q1

REPORT INFORMATION
  Report Type: Spontaneous
  Country: US (occurrence: US)
  Receive Date: 20200121
  Receipt Date: 20200121
  Transmission Date: 20200409
  Serious: No
  Sender: FDA-Public Use
  Company Number: None

PATIENT
  Age: 46 Year
  Sex: Female

DRUGS (3)
  1. SILDENAFIL TAB 20MG [Suspect]
     Active Substance: SILDENAFIL
     Route: 048
     Dates: start: 20200112
  2. LETAIRIS [Concomitant]
     Active Substance: AMBRISENTAN
  3. ADEMPAS [Concomitant]
     Active Substance: RIOCIGUAT

REACTIONS (5)
  - Weight decreased [None]
  - Headache [None]
  - Hypotension [None]
  - Nasal congestion [None]
  - Presyncope [None]

NARRATIVE: CASE EVENT DATE: 20200121
